FAERS Safety Report 14277740 (Version 1)
Quarter: 2017Q4

REPORT INFORMATION
  Report Type: Spontaneous
  Country: US (occurrence: US)
  Receive Date: 20171212
  Receipt Date: 20171212
  Transmission Date: 20180321
  Serious: No
  Sender: FDA-Public Use
  Company Number: US-PFIZER INC-2017520022

PATIENT
  Age: 20 Year
  Sex: Male
  Weight: 65.76 kg

DRUGS (7)
  1. PERCOCET [Concomitant]
     Active Substance: ACETAMINOPHEN\OXYCODONE HYDROCHLORIDE
     Indication: PAIN
     Dosage: UNK, FOR ABOUT A 24HOUR PERIOD SOMETIME IN 2011
     Dates: start: 2011, end: 2011
  2. LYRICA [Suspect]
     Active Substance: PREGABALIN
     Indication: NEURALGIA
     Dosage: UNK
     Dates: start: 2011
  3. IBUPROFEN. [Concomitant]
     Active Substance: IBUPROFEN
     Indication: PAIN
     Dosage: UNK, HIGHER DOSAGE FOR 1-2 WEEKS, THEN TOOK IT AGAIN FOR ANOTHER WEEK, DATES UNKNOWN.
     Dates: start: 2011, end: 2011
  4. VICODIN [Concomitant]
     Active Substance: ACETAMINOPHEN\HYDROCODONE BITARTRATE
     Indication: PAIN
     Dosage: UNK, FOR ABOUT A 24HOUR PERIOD SOMETIME IN 2011.
     Dates: start: 2011, end: 2011
  5. MELOXICAM. [Concomitant]
     Active Substance: MELOXICAM
     Indication: FIBROMYALGIA
  6. PREDNISONE. [Concomitant]
     Active Substance: PREDNISONE
     Indication: NEURALGIA
     Dosage: UNK, TAPERED DOSE
  7. MELOXICAM. [Concomitant]
     Active Substance: MELOXICAM
     Indication: COMPLEX REGIONAL PAIN SYNDROME
     Dosage: UNK, LOW DOSAGE, TOOK IT FOR 1 MONTH RECENTLY, THEN STOPPED IT A COUPLE OF WEEKS AGO

REACTIONS (3)
  - Memory impairment [Unknown]
  - Amnesia [Unknown]
  - Wrong technique in product usage process [Unknown]

NARRATIVE: CASE EVENT DATE: 2011
